FAERS Safety Report 18855636 (Version 1)
Quarter: 2021Q1

REPORT INFORMATION
  Report Type: Spontaneous
  Country: IL (occurrence: IL)
  Receive Date: 20210205
  Receipt Date: 20210205
  Transmission Date: 20210420
  Serious: Yes (Death, Other)
  Sender: FDA-Public Use
  Company Number: IL-SA-2021SA035056

PATIENT
  Age: 88 Year
  Sex: Female

DRUGS (1)
  1. CLEXANE [Suspect]
     Active Substance: ENOXAPARIN SODIUM
     Indication: VENOUS THROMBOSIS
     Route: 058

REACTIONS (4)
  - Haemodynamic instability [Fatal]
  - Abdominal wall haematoma [Fatal]
  - Injection site haematoma [Fatal]
  - Shock haemorrhagic [Fatal]
